FAERS Safety Report 11568294 (Version 1)
Quarter: 2015Q3

REPORT INFORMATION
  Report Type: Spontaneous
  Country: US (occurrence: None)
  Receive Date: 20150925
  Receipt Date: 20150925
  Transmission Date: 20151125
  Serious: Yes (Hospitalization, Disabling)
  Sender: FDA-Public Use
  Company Number: US-ZYDUS-009095

PATIENT
  Age: 52 Year
  Sex: Male

DRUGS (6)
  1. INSULIN GLARGINE [Concomitant]
     Active Substance: INSULIN GLARGINE
  2. ALLOPURINOL. [Concomitant]
     Active Substance: ALLOPURINOL
  3. VENLAFAXINE [Suspect]
     Active Substance: VENLAFAXINE HYDROCHLORIDE
     Indication: DEPRESSION
  4. RISPERIDONE. [Concomitant]
     Active Substance: RISPERIDONE
  5. COLCHICINE. [Concomitant]
     Active Substance: COLCHICINE
  6. CLONAZEPAM. [Concomitant]
     Active Substance: CLONAZEPAM

REACTIONS (2)
  - Erectile dysfunction [None]
  - Priapism [None]
